FAERS Safety Report 25259138 (Version 1)
Quarter: 2025Q2

REPORT INFORMATION
  Report Type: Spontaneous
  Country: GB (occurrence: GB)
  Receive Date: 20250501
  Receipt Date: 20250501
  Transmission Date: 20250717
  Serious: Yes (Disabling, Other)
  Sender: AUROBINDO
  Company Number: GB-MHRA-MED-202504161410493960-MVTHQ

PATIENT
  Sex: Female

DRUGS (1)
  1. BISOPROLOL [Suspect]
     Active Substance: BISOPROLOL
     Indication: Product used for unknown indication
     Route: 065

REACTIONS (4)
  - Hyponatraemia [Not Recovered/Not Resolved]
  - Confusional state [Recovered/Resolved with Sequelae]
  - Fatigue [Not Recovered/Not Resolved]
  - Nausea [Recovering/Resolving]
